FAERS Safety Report 14342662 (Version 1)
Quarter: 2018Q1

REPORT INFORMATION
  Report Type: Spontaneous
  Country: JP (occurrence: JP)
  Receive Date: 20180102
  Receipt Date: 20180102
  Transmission Date: 20180509
  Serious: Yes (Death)
  Sender: FDA-Public Use
  Company Number: JP-BIOCRYST PHARMACEUTICALS, INC.-2017BCR00190

PATIENT
  Age: 13 Year
  Sex: Female

DRUGS (4)
  1. PHENOBAL [Concomitant]
     Active Substance: PHENOBARBITAL
     Indication: CEREBRAL PALSY
     Dosage: 30 MG, 2X/DAY
  2. RAPIACTA [Suspect]
     Active Substance: PERAMIVIR
     Indication: INFLUENZA
     Dosage: 300 MG, ONCE
     Route: 042
     Dates: start: 20160211, end: 20160211
  3. CERCINE [Concomitant]
     Active Substance: DIAZEPAM
     Indication: CEREBRAL PALSY
     Dosage: 3 MG, 2X/DAY
  4. DEPAKENE [Concomitant]
     Active Substance: VALPROIC ACID
     Indication: CEREBRAL PALSY
     Dosage: 30 MG, 2X/DAY

REACTIONS (1)
  - Influenza [Fatal]

NARRATIVE: CASE EVENT DATE: 20160213
